FAERS Safety Report 14920035 (Version 3)
Quarter: 2018Q2

REPORT INFORMATION
  Report Type: Report from Study
  Country: US (occurrence: US)
  Receive Date: 20180521
  Receipt Date: 20180622
  Transmission Date: 20180711
  Serious: Yes (Other)
  Sender: FDA-Public Use
  Company Number: US-JNJFOC-20180513585

PATIENT
  Age: 57 Year
  Sex: Male

DRUGS (18)
  1. MIRAPEX [Concomitant]
     Active Substance: PRAMIPEXOLE DIHYDROCHLORIDE
  2. GLYBURIDE. [Concomitant]
     Active Substance: GLYBURIDE
  3. TOPROL XL [Concomitant]
     Active Substance: METOPROLOL SUCCINATE
  4. FLUTICASONE PROPIONATE. [Concomitant]
     Active Substance: FLUTICASONE PROPIONATE
  5. ALBUTEROL. [Concomitant]
     Active Substance: ALBUTEROL
  6. OXYCODONE [Concomitant]
     Active Substance: OXYCODONE
  7. AMITRIPTYLINE [Concomitant]
     Active Substance: AMITRIPTYLINE
  8. VIAGRA [Concomitant]
     Active Substance: SILDENAFIL CITRATE
  9. IMBRUVICA [Suspect]
     Active Substance: IBRUTINIB
     Indication: CHRONIC LYMPHOCYTIC LEUKAEMIA
     Route: 048
     Dates: start: 20180410
  10. GABAPENTIN. [Concomitant]
     Active Substance: GABAPENTIN
  11. ATORVASTATIN CALCIUM. [Concomitant]
     Active Substance: ATORVASTATIN CALCIUM
  12. IMBRUVICA [Suspect]
     Active Substance: IBRUTINIB
     Indication: CHRONIC LYMPHOCYTIC LEUKAEMIA
     Route: 048
     Dates: start: 20180223, end: 20180403
  13. KLONOPIN [Concomitant]
     Active Substance: CLONAZEPAM
  14. ADVAIR HFA [Concomitant]
     Active Substance: FLUTICASONE PROPIONATE\SALMETEROL XINAFOATE
  15. IMBRUVICA [Suspect]
     Active Substance: IBRUTINIB
     Indication: CHRONIC LYMPHOCYTIC LEUKAEMIA
     Route: 048
     Dates: start: 20180404
  16. LASIX [Concomitant]
     Active Substance: FUROSEMIDE
  17. NORVASC [Concomitant]
     Active Substance: AMLODIPINE BESYLATE
  18. IMBRUVICA [Suspect]
     Active Substance: IBRUTINIB
     Indication: CHRONIC LYMPHOCYTIC LEUKAEMIA
     Route: 048
     Dates: start: 20180227, end: 20180509

REACTIONS (8)
  - Contusion [Unknown]
  - Off label use [Unknown]
  - Haemorrhagic diathesis [Unknown]
  - Hypoxia [Unknown]
  - Dyspnoea [Unknown]
  - Incorrect dose administered [Unknown]
  - Cyanosis [Unknown]
  - Fatigue [Unknown]

NARRATIVE: CASE EVENT DATE: 2018
